FAERS Safety Report 18560074 (Version 1)
Quarter: 2020Q4

REPORT INFORMATION
  Report Type: Spontaneous
  Country: JP (occurrence: JP)
  Receive Date: 20201130
  Receipt Date: 20201130
  Transmission Date: 20210114
  Serious: Yes (Hospitalization)
  Sender: FDA-Public Use
  Company Number: JP-FERRINGPH-2020FE08408

PATIENT
  Age: 77 Year
  Sex: Male

DRUGS (2)
  1. MINIRINMELT [Suspect]
     Active Substance: DESMOPRESSIN ACETATE
     Indication: NOCTURIA
     Dosage: 50 UG
     Route: 065
     Dates: start: 20201112, end: 20201112
  2. MINIRINMELT [Suspect]
     Active Substance: DESMOPRESSIN ACETATE
     Dosage: 25 UG
     Route: 065
     Dates: start: 20201002

REACTIONS (2)
  - Malaise [Unknown]
  - Hyponatraemia [Unknown]
